FAERS Safety Report 5530919-X (Version None)
Quarter: 2007Q4

REPORT INFORMATION
  Report Type: 
  Country: None (occurrence: None)
  Receive Date: 20071130
  Receipt Date: 20071119
  Transmission Date: 20080405
  Serious: Yes (Hospitalization)
  Sender: FDA-Public Use
  Company Number: IT-PFIZER INC-2007046703

PATIENT
  Sex: Female
  Weight: 64 kg

DRUGS (7)
  1. SU-011,248 [Suspect]
     Indication: BREAST CANCER
     Route: 048
     Dates: start: 20070526, end: 20070531
  2. TRASTUZUMAB [Suspect]
     Indication: BREAST CANCER
     Route: 042
     Dates: start: 20070525, end: 20070525
  3. DOCETAXEL [Suspect]
     Indication: BREAST CANCER
     Route: 042
     Dates: start: 20070525, end: 20070525
  4. LANSOX [Concomitant]
  5. NEUPOGEN [Concomitant]
     Route: 058
     Dates: start: 20070531, end: 20070606
  6. AULIN [Concomitant]
     Route: 048
  7. TAVANIC [Concomitant]
     Route: 048
     Dates: start: 20070531, end: 20070606

REACTIONS (2)
  - ERYSIPELAS [None]
  - NEUTROPENIA [None]
